FAERS Safety Report 6651820-4 (Version None)
Quarter: 2010Q1

REPORT INFORMATION
  Report Type: 
  Country: None (occurrence: None)
  Receive Date: 20100325
  Receipt Date: 20100315
  Transmission Date: 20100710
  Serious: Yes (Disabling)
  Sender: FDA-Public Use
  Company Number: GB-PFIZER INC-2008069432

PATIENT
  Age: 32 Year
  Sex: Male

DRUGS (2)
  1. CHAMPIX [Suspect]
     Dosage: 1 MG, 2X/DAY
     Route: 048
     Dates: start: 20080618, end: 20080805
  2. FLOXACILLIN SODIUM [Concomitant]
     Indication: CHALAZION
     Dosage: 500 MG, 4X/DAY
     Dates: start: 20080604, end: 20080611

REACTIONS (5)
  - APATHY [None]
  - ARTHRALGIA [None]
  - DEPRESSED MOOD [None]
  - FATIGUE [None]
  - MOUTH ULCERATION [None]
